FAERS Safety Report 7810087-1 (Version None)
Quarter: 2011Q4

REPORT INFORMATION
  Report Type: 
  Country: None (occurrence: None)
  Receive Date: 20111012
  Receipt Date: 20111004
  Transmission Date: 20120403
  Serious: Yes (Hospitalization)
  Sender: FDA-Public Use
  Company Number: JP-CEPHALON-2011001220

PATIENT
  Age: 69 Year
  Sex: Male
  Weight: 66 kg

DRUGS (6)
  1. LANSOPRAZOLE [Concomitant]
  2. CELECOXIB [Concomitant]
  3. BENDAMUSTINE HCL [Suspect]
     Indication: MANTLE CELL LYMPHOMA
     Route: 041
     Dates: start: 20110209
  4. MAGNESIUM OXIDE [Concomitant]
  5. SULFAMETHOXAZOLE AND TRIMETHOPRIM [Concomitant]
  6. METFORMIN HCL [Concomitant]

REACTIONS (5)
  - NEUTROPENIA [None]
  - CHROMATURIA [None]
  - APLASIA PURE RED CELL [None]
  - NAUSEA [None]
  - THROMBOCYTOPENIA [None]
